FAERS Safety Report 9907021 (Version 3)
Quarter: 2014Q2

REPORT INFORMATION
  Report Type: Spontaneous
  Country: US (occurrence: US)
  Receive Date: 20140218
  Receipt Date: 20140415
  Transmission Date: 20141212
  Serious: Yes (Hospitalization, Other)
  Sender: FDA-Public Use
  Company Number: US-B.I. PHARMACEUTICALS,INC./RIDGEFIELD-2014-BI-06769BP

PATIENT
  Sex: Male
  Weight: 79.3 kg

DRUGS (23)
  1. PRADAXA [Suspect]
     Indication: ANTICOAGULANT THERAPY
     Dosage: 150 MG
     Route: 065
     Dates: start: 20101225, end: 20110214
  2. PRADAXA [Suspect]
     Indication: THROMBOSIS PROPHYLAXIS
  3. PRADAXA [Suspect]
     Indication: ATRIAL FIBRILLATION
  4. TEKTURNA [Concomitant]
     Route: 065
     Dates: start: 2005, end: 2011
  5. VITAMIN D [Concomitant]
     Indication: VITAMIN D DEFICIENCY
     Dosage: 1666.6667 U
     Route: 065
  6. ECOTRIN [Concomitant]
     Dosage: 81 MG
     Route: 065
  7. COREG [Concomitant]
     Indication: CORONARY ARTERY DISEASE
     Route: 065
  8. COREG [Concomitant]
     Indication: ATRIAL FIBRILLATION
  9. IMDUR [Concomitant]
     Dosage: 120 MG
     Route: 065
  10. JANUMET [Concomitant]
     Indication: TYPE 2 DIABETES MELLITUS
     Route: 065
     Dates: start: 2008, end: 2011
  11. GLIMEPIRIDE [Concomitant]
     Dosage: 2 MG
     Route: 065
     Dates: start: 2007
  12. FUROSEMIDE [Concomitant]
     Dosage: 80 MG
     Route: 065
  13. MICARDIS [Concomitant]
     Dosage: 40 MG
     Route: 065
  14. VITAMIN B12 [Concomitant]
     Indication: ANAEMIA VITAMIN B12 DEFICIENCY
     Dosage: 1000 MG
     Route: 060
  15. NITROGLYCERIN [Concomitant]
     Indication: CORONARY ARTERY DISEASE
     Route: 065
  16. CRESTOR [Concomitant]
     Indication: HYPERLIPIDAEMIA
     Dosage: 20 MG
     Route: 065
  17. CELEBREX [Concomitant]
     Indication: PAIN
     Route: 065
  18. CELEBREX [Concomitant]
     Indication: GOUT
  19. DESONIDE CREA-MOISTURIZING [Concomitant]
     Route: 065
  20. CLOBETASOL AND CLOBETASOL EMUL [Concomitant]
     Route: 065
  21. PREDNISOLONE SODIUM PHOSPHATE [Concomitant]
     Route: 065
  22. KETOROLAC TROMETHAMINE [Concomitant]
     Route: 065
  23. ALLOPURINOL [Concomitant]
     Indication: GOUT
     Dosage: 100 MG
     Route: 065

REACTIONS (2)
  - Upper gastrointestinal haemorrhage [Unknown]
  - Myocardial infarction [Unknown]
